FAERS Safety Report 25809735 (Version 2)
Quarter: 2025Q4

REPORT INFORMATION
  Report Type: Spontaneous
  Country: US (occurrence: US)
  Receive Date: 20250916
  Receipt Date: 20251231
  Transmission Date: 20260117
  Serious: No
  Sender: TRAVERE THERAPEUTICS
  Company Number: US-TRAVERE-2025TVT01147

PATIENT
  Age: 53 Year
  Sex: Male

DRUGS (1)
  1. FILSPARI [Suspect]
     Active Substance: SPARSENTAN
     Indication: IgA nephropathy
     Route: 048
     Dates: start: 20241014

REACTIONS (4)
  - Upper respiratory tract infection [Unknown]
  - Wheezing [None]
  - Productive cough [None]
  - Fatigue [None]

NARRATIVE: CASE EVENT DATE: 20250701
